FAERS Safety Report 8882470 (Version 2)
Quarter: 2012Q4

REPORT INFORMATION
  Report Type: Report from Study
  Country: DE (occurrence: DE)
  Receive Date: 20121102
  Receipt Date: 20121205
  Transmission Date: 20130627
  Serious: Yes (Hospitalization)
  Sender: FDA-Public Use
  Company Number: DE-EISAI INC-E7389-03156-CLI-DE

PATIENT
  Age: 58 Year
  Sex: Female
  Weight: 107 kg

DRUGS (2)
  1. HALAVEN [Suspect]
     Indication: METASTATIC BREAST CANCER
     Route: 041
     Dates: start: 20120712, end: 20121004
  2. LAPATINIB [Suspect]
     Indication: METASTATIC BREAST CANCER
     Route: 048
     Dates: start: 20120712, end: 20121016

REACTIONS (1)
  - Arrhythmia [Recovered/Resolved]
